FAERS Safety Report 6900715-7 (Version None)
Quarter: 2010Q3

REPORT INFORMATION
  Report Type: 
  Country: None (occurrence: None)
  Receive Date: 20100730
  Receipt Date: 20100723
  Transmission Date: 20110219
  Serious: Yes (Other)
  Sender: FDA-Public Use
  Company Number: WAES 1007USA03236

PATIENT
  Age: 26 Year
  Sex: Male

DRUGS (9)
  1. CRIXIVAN [Suspect]
     Route: 048
  2. AGENERASE [Suspect]
  3. ATRIPLA [Suspect]
  4. PREZISTA [Suspect]
     Route: 048
  5. RESCRIPTOR [Suspect]
  6. REYATAZ [Concomitant]
  7. TRUVADA [Suspect]
  8. ZERIT [Suspect]
  9. ZIAGEN [Suspect]

REACTIONS (5)
  - ABDOMINAL PAIN [None]
  - FATIGUE [None]
  - HALLUCINATION [None]
  - INSOMNIA [None]
  - RASH [None]
